FAERS Safety Report 14947658 (Version 3)
Quarter: 2024Q1

REPORT INFORMATION
  Report Type: Spontaneous
  Country: FR (occurrence: FR)
  Receive Date: 20180529
  Receipt Date: 20240325
  Transmission Date: 20240410
  Serious: Yes (Other)
  Sender: FDA-Public Use
  Company Number: FR-JNJFOC-20180532782

PATIENT
  Age: 83 Year
  Sex: Male

DRUGS (3)
  1. RISPERDAL [Suspect]
     Active Substance: RISPERIDONE
     Indication: Wrong patient received product
     Route: 048
     Dates: start: 20180506, end: 2018
  2. PRAZEPAM [Suspect]
     Active Substance: PRAZEPAM
     Indication: Wrong patient received product
     Route: 048
     Dates: start: 20180506, end: 2018
  3. AKINETON [Suspect]
     Active Substance: BIPERIDEN HYDROCHLORIDE
     Indication: Wrong patient received product
     Route: 048
     Dates: start: 20180506, end: 2018

REACTIONS (4)
  - Dizziness [Recovered/Resolved]
  - Somnolence [Recovered/Resolved]
  - Wrong patient received product [Unknown]
  - Medication error [Unknown]

NARRATIVE: CASE EVENT DATE: 20180506
